FAERS Safety Report 22088713 (Version 1)
Quarter: 2023Q1

REPORT INFORMATION
  Report Type: Spontaneous
  Country: US (occurrence: None)
  Receive Date: 20230310
  Receipt Date: 20230310
  Transmission Date: 20230417
  Serious: No
  Sender: FDA-Public Use
  Company Number: None

PATIENT
  Age: 46 Year
  Sex: Female
  Weight: 92.53 kg

DRUGS (1)
  1. LEVOTHYROXINE [Suspect]
     Active Substance: LEVOTHYROXINE
     Indication: Hypothyroidism
     Dosage: MULTIPLE DOSES DAILLY ORAL?
     Route: 048
     Dates: start: 2015

REACTIONS (2)
  - Product substitution issue [None]
  - Blood thyroid stimulating hormone abnormal [None]
